FAERS Safety Report 6084827-9 (Version None)
Quarter: 2009Q1

REPORT INFORMATION
  Report Type: 
  Country: None (occurrence: None)
  Receive Date: 20090218
  Receipt Date: 20090203
  Transmission Date: 20090719
  Serious: Yes (Other)
  Sender: FDA-Public Use
  Company Number: 231882K08USA

PATIENT
  Age: 49 Year
  Sex: Female

DRUGS (7)
  1. REBIF [Suspect]
     Indication: MULTIPLE SCLEROSIS
     Dosage: 44 MCG, 3 IN 1 WEEKS, SUBCUTANEOUS
     Route: 058
     Dates: start: 20070627
  2. ALEVE (CAPLET) [Concomitant]
  3. LASIX [Concomitant]
  4. POTASSIUM (POTASSIUM) [Concomitant]
  5. OVER THE COUNTER LAXATIVES (LAXATIVES) [Concomitant]
  6. CELEXA [Concomitant]
  7. XANAX [Concomitant]

REACTIONS (8)
  - DISEASE RECURRENCE [None]
  - ELECTROCARDIOGRAM ABNORMAL [None]
  - HAEMOPTYSIS [None]
  - PARKINSON'S DISEASE [None]
  - RENAL DISORDER [None]
  - SINUS DISORDER [None]
  - SINUSITIS [None]
  - SWELLING [None]
